FAERS Safety Report 24231431 (Version 2)
Quarter: 2024Q4

REPORT INFORMATION
  Report Type: Spontaneous
  Country: US (occurrence: US)
  Receive Date: 20240821
  Receipt Date: 20241031
  Transmission Date: 20250114
  Serious: Yes (Other)
  Sender: AMGEN
  Company Number: US-AMGEN-USASP2024161738

PATIENT
  Sex: Female

DRUGS (2)
  1. TEPEZZA [Suspect]
     Active Substance: TEPROTUMUMAB-TRBW
     Indication: Endocrine ophthalmopathy
     Dosage: UNK
     Route: 042
     Dates: start: 20230404, end: 20230919
  2. TEPEZZA [Suspect]
     Active Substance: TEPROTUMUMAB-TRBW
     Indication: Graves^ disease

REACTIONS (10)
  - Endocrine ophthalmopathy [Unknown]
  - Graves^ disease [Unknown]
  - Deafness permanent [Not Recovered/Not Resolved]
  - Pain [Unknown]
  - Emotional distress [Unknown]
  - Anxiety [Unknown]
  - Discomfort [Unknown]
  - Quality of life decreased [Unknown]
  - Tinnitus [Not Recovered/Not Resolved]
  - Product use complaint [Unknown]
